FAERS Safety Report 20909757 (Version 1)
Quarter: 2022Q2

REPORT INFORMATION
  Report Type: Spontaneous
  Country: US (occurrence: US)
  Receive Date: 20220603
  Receipt Date: 20220603
  Transmission Date: 20220721
  Serious: No
  Sender: FDA-Public Use
  Company Number: US-TEVA-2022-US-2037918

PATIENT

DRUGS (1)
  1. LOXAPINE [Suspect]
     Active Substance: LOXAPINE

REACTIONS (1)
  - Serositis [Unknown]
